FAERS Safety Report 14732864 (Version 5)
Quarter: 2018Q2

REPORT INFORMATION
  Report Type: Spontaneous
  Country: US (occurrence: US)
  Receive Date: 20180409
  Receipt Date: 20180614
  Transmission Date: 20180711
  Serious: No
  Sender: FDA-Public Use
  Company Number: US-PFIZER INC-2018141612

PATIENT
  Age: 50 Year
  Sex: Female
  Weight: 86 kg

DRUGS (1)
  1. LYRICA [Suspect]
     Active Substance: PREGABALIN
     Dosage: UNK

REACTIONS (11)
  - Drug prescribing error [Unknown]
  - Piloerection [Unknown]
  - Balance disorder [Unknown]
  - Feeling abnormal [Unknown]
  - Nausea [Unknown]
  - Decreased appetite [Unknown]
  - Vomiting [Unknown]
  - Dizziness [Unknown]
  - Insomnia [Unknown]
  - Withdrawal syndrome [Unknown]
  - Influenza like illness [Unknown]

NARRATIVE: CASE EVENT DATE: 201804
